FAERS Safety Report 15951757 (Version 6)
Quarter: 2020Q3

REPORT INFORMATION
  Report Type: Report from Study
  Country: US (occurrence: US)
  Receive Date: 20190212
  Receipt Date: 20200703
  Transmission Date: 20201102
  Serious: Yes (Other)
  Sender: FDA-Public Use
  Company Number: PHEH2019US006216

PATIENT
  Sex: Female

DRUGS (2)
  1. KYMRIAH [Suspect]
     Active Substance: TISAGENLECLEUCEL
     Indication: DIFFUSE LARGE B-CELL LYMPHOMA
     Dosage: UNK, ONCE/SINGLE
     Route: 042
     Dates: start: 20190107
  2. DHAP [Concomitant]
     Active Substance: CISPLATIN\CYTARABINE\DEXAMETHASONE
     Indication: PRODUCT USED FOR UNKNOWN INDICATION
     Route: 065

REACTIONS (15)
  - Nasopharyngitis [Unknown]
  - Immune system disorder [Unknown]
  - Neutrophil count decreased [Unknown]
  - Hypoacusis [Unknown]
  - Out of specification test results [Unknown]
  - Visual impairment [Unknown]
  - Pain [Unknown]
  - Platelet count decreased [Unknown]
  - Skin sensitisation [Unknown]
  - Skin hypertrophy [Unknown]
  - Illness [Unknown]
  - Pneumonia [Recovering/Resolving]
  - Thrombosis [Unknown]
  - Serum ferritin decreased [Recovering/Resolving]
  - Boredom [Unknown]
